FAERS Safety Report 17286923 (Version 1)
Quarter: 2020Q1

REPORT INFORMATION
  Report Type: Spontaneous
  Country: US (occurrence: US)
  Receive Date: 20200120
  Receipt Date: 20200120
  Transmission Date: 20200409
  Serious: Yes (Hospitalization, Other)
  Sender: FDA-Public Use
  Company Number: US-DRREDDYS-USA/USA/20/0118709

PATIENT
  Age: 41 Year
  Sex: Male

DRUGS (2)
  1. SODIUM NITROPRUSSIDE. [Suspect]
     Active Substance: SODIUM NITROPRUSSIDE
     Dosage: 0.4 UG/KG/MIN (TOTAL DOSE 52 UG/MIN)
     Route: 065
  2. SODIUM NITROPRUSSIDE. [Suspect]
     Active Substance: SODIUM NITROPRUSSIDE
     Indication: CARDIOGENIC SHOCK
     Dosage: 26 MICROG/MIN

REACTIONS (3)
  - Mental status changes [Recovered/Resolved]
  - Lactic acidosis [Recovered/Resolved]
  - Toxicity to various agents [Unknown]
